FAERS Safety Report 14882893 (Version 1)
Quarter: 2018Q2

REPORT INFORMATION
  Report Type: Spontaneous
  Country: US (occurrence: US)
  Receive Date: 20180511
  Receipt Date: 20180511
  Transmission Date: 20180711
  Serious: Yes (Other)
  Sender: FDA-Public Use
  Company Number: US-FRESENIUS KABI-FK201805660

PATIENT
  Age: 55 Year
  Sex: Male

DRUGS (3)
  1. DOXORUBICIN (MANUFACTURER UNKNOWN) [Suspect]
     Active Substance: DOXORUBICIN
     Indication: ANAPLASTIC THYROID CANCER
     Route: 042
  2. PEGFILGRASTIM [Concomitant]
     Active Substance: PEGFILGRASTIM
     Indication: PRODUCT USED FOR UNKNOWN INDICATION
  3. DOCETAXEL. [Suspect]
     Active Substance: DOCETAXEL
     Indication: ANAPLASTIC THYROID CANCER
     Route: 042

REACTIONS (3)
  - Pneumonitis [Recovered/Resolved]
  - Failure to thrive [Recovered/Resolved]
  - Cystitis haemorrhagic [Unknown]
